FAERS Safety Report 13247784 (Version 5)
Quarter: 2018Q2

REPORT INFORMATION
  Report Type: Report from Study
  Country: None (occurrence: US)
  Receive Date: 20170217
  Receipt Date: 20180523
  Transmission Date: 20180711
  Serious: Yes (Other)
  Sender: FDA-Public Use
  Company Number: US-ABBVIE-17K-163-1874074-00

PATIENT
  Age: 65 Year
  Sex: Female

DRUGS (3)
  1. HUMIRA [Suspect]
     Active Substance: ADALIMUMAB
     Indication: PSORIATIC ARTHROPATHY
     Route: 058
     Dates: start: 2015, end: 20170228
  2. HUMIRA [Suspect]
     Active Substance: ADALIMUMAB
     Route: 058
     Dates: start: 20170330
  3. LISINOPRIL. [Concomitant]
     Active Substance: LISINOPRIL
     Indication: HYPERTENSION

REACTIONS (17)
  - Psoriatic arthropathy [Not Recovered/Not Resolved]
  - Spinal compression fracture [Recovered/Resolved]
  - Gastric disorder [Recovering/Resolving]
  - Dizziness [Unknown]
  - Fall [Recovered/Resolved]
  - Rash macular [Not Recovered/Not Resolved]
  - Pain in extremity [Unknown]
  - Weight decreased [Not Recovered/Not Resolved]
  - Fall [Unknown]
  - Influenza [Unknown]
  - Coronary artery occlusion [Unknown]
  - Osteoporosis [Unknown]
  - Contusion [Recovering/Resolving]
  - Intervertebral disc protrusion [Recovered/Resolved]
  - Balance disorder [Unknown]
  - Pain [Recovering/Resolving]
  - Alopecia [Unknown]

NARRATIVE: CASE EVENT DATE: 2015
